FAERS Safety Report 23563803 (Version 5)
Quarter: 2025Q1

REPORT INFORMATION
  Report Type: Report from Study
  Country: CA (occurrence: CA)
  Receive Date: 20240226
  Receipt Date: 20250120
  Transmission Date: 20250408
  Serious: Yes (Hospitalization)
  Sender: JAZZ
  Company Number: CA-JAZZ PHARMACEUTICALS-2023-CA-008513

PATIENT
  Sex: Female

DRUGS (19)
  1. XYREM [Suspect]
     Active Substance: SODIUM OXYBATE
     Indication: Narcolepsy
     Dosage: 4.5 G SPLIT 2.25G 2 NIGHTLY DOSES 2 WEEKS OR 4 WEEKS
  2. XYREM [Suspect]
     Active Substance: SODIUM OXYBATE
     Indication: Cataplexy
     Dosage: 6 G SPLIT 3 G 2 NIGHTLY DOSES 2 WEEKS OR 4 WEEKS
  3. XYREM [Suspect]
     Active Substance: SODIUM OXYBATE
     Dosage: 2.25 GRAM, BID, 4.5 GRAM,DIVIDED IN TWO EQUAL DOSES (QHS AND 2.5-4 HRS AFTER 1ST DOSE)
     Route: 048
     Dates: start: 20230714, end: 20230720
  4. XYREM [Suspect]
     Active Substance: SODIUM OXYBATE
     Dosage: 2.5 GRAM, BID, 5 GRAM, DIVIDED IN TWO EQUAL DOSES (QHS AND 2.5-4 HRS AFTER 1ST DOSE)
     Route: 048
     Dates: start: 20230721, end: 20230802
  5. XYREM [Suspect]
     Active Substance: SODIUM OXYBATE
     Dosage: 3 GRAM, BID, 6 G DIVIDED IN TWO EQUAL DOSES (QHS AND 2.5 - 4HRS AFTER 1ST DOSE)
     Route: 048
     Dates: start: 20230803, end: 2023
  6. XYREM [Suspect]
     Active Substance: SODIUM OXYBATE
  7. XYREM [Suspect]
     Active Substance: SODIUM OXYBATE
  8. XYREM [Suspect]
     Active Substance: SODIUM OXYBATE
     Route: 048
     Dates: start: 2023, end: 202309
  9. XYREM [Suspect]
     Active Substance: SODIUM OXYBATE
     Dosage: 3.5 GRAM, BID
     Route: 048
     Dates: start: 202309, end: 2024
  10. XYREM [Suspect]
     Active Substance: SODIUM OXYBATE
     Dates: end: 20240319
  11. XYREM [Suspect]
     Active Substance: SODIUM OXYBATE
     Dosage: 3.75 GRAM, BID
     Route: 048
     Dates: start: 2024
  12. XYREM [Suspect]
     Active Substance: SODIUM OXYBATE
     Dosage: 4.25 GRAM, BID
     Route: 048
     Dates: start: 2024
  13. XYREM [Suspect]
     Active Substance: SODIUM OXYBATE
  14. XYREM [Suspect]
     Active Substance: SODIUM OXYBATE
  15. XYREM [Suspect]
     Active Substance: SODIUM OXYBATE
  16. XYREM [Suspect]
     Active Substance: SODIUM OXYBATE
     Dates: end: 20240319
  17. XYREM [Suspect]
     Active Substance: SODIUM OXYBATE
  18. XYREM [Suspect]
     Active Substance: SODIUM OXYBATE
     Dosage: 4.5 GRAM, BID
  19. SUNOSI [Concomitant]
     Active Substance: SOLRIAMFETOL
     Indication: Product used for unknown indication

REACTIONS (9)
  - Hospitalisation [Unknown]
  - Eating disorder [Unknown]
  - Nausea [Unknown]
  - Headache [Unknown]
  - Gait disturbance [Recovering/Resolving]
  - Pain [Unknown]
  - Intentional product use issue [Unknown]
  - Off label use [Unknown]
  - Product administration interrupted [Unknown]
